FAERS Safety Report 8701990 (Version 2)
Quarter: 2014Q1

REPORT INFORMATION
  Report Type: Spontaneous
  Country: US (occurrence: US)
  Receive Date: 20120803
  Receipt Date: 20140128
  Transmission Date: 20141002
  Serious: Yes (Hospitalization)
  Sender: FDA-Public Use
  Company Number: US-JNJFOC-20120713227

PATIENT
  Sex: 0

DRUGS (2)
  1. INVEGA SUSTENNA [Suspect]
     Indication: PRODUCT USED FOR UNKNOWN INDICATION
     Route: 030
     Dates: start: 20120710
  2. INVEGA SUSTENNA [Suspect]
     Indication: PRODUCT USED FOR UNKNOWN INDICATION
     Dosage: 234 MG/156 MG INITIATION DOSES
     Route: 030

REACTIONS (4)
  - Hallucinations, mixed [Not Recovered/Not Resolved]
  - Aggression [Not Recovered/Not Resolved]
  - Underdose [Unknown]
  - Product packaging issue [Unknown]
